FAERS Safety Report 14412363 (Version 4)
Quarter: 2018Q2

REPORT INFORMATION
  Report Type: Report from Study
  Country: JP (occurrence: JP)
  Receive Date: 20180119
  Receipt Date: 20180607
  Transmission Date: 20180711
  Serious: Yes (Death, Hospitalization)
  Sender: FDA-Public Use
  Company Number: JP-DSJP-DSJ-2018-101559

PATIENT

DRUGS (8)
  1. NIFEDIPINE. [Concomitant]
     Active Substance: NIFEDIPINE
     Dosage: 20MG/DAY
     Route: 048
  2. EDOXABAN [Suspect]
     Active Substance: EDOXABAN TOSYLATE
     Dosage: 15 MG, QD
     Route: 048
     Dates: start: 20171204, end: 20171223
  3. MAINTATE [Concomitant]
     Active Substance: BISOPROLOL FUMARATE
     Dosage: 1.25MG/DAY
     Route: 048
  4. PREDNISOLONE. [Concomitant]
     Active Substance: PREDNISOLONE
     Dosage: 1MG/DAY
     Route: 048
  5. MICARDIS [Concomitant]
     Active Substance: TELMISARTAN
     Dosage: 40MG/DAY
     Route: 048
  6. LANSOPRAZOLE. [Concomitant]
     Active Substance: LANSOPRAZOLE
     Dosage: 15MG/DAY
     Route: 048
  7. EDOXABAN [Suspect]
     Active Substance: EDOXABAN TOSYLATE
     Indication: ATRIAL FIBRILLATION
     Dosage: 30 MG, QD
     Route: 048
     Dates: start: 20160511, end: 20171203
  8. ALFAROL [Concomitant]
     Active Substance: ALFACALCIDOL
     Dosage: 0.5G/DAY
     Route: 048

REACTIONS (2)
  - Embolic stroke [Fatal]
  - Haemorrhage subcutaneous [Unknown]

NARRATIVE: CASE EVENT DATE: 201712
